FAERS Safety Report 10085951 (Version 3)
Quarter: 2014Q2

REPORT INFORMATION
  Report Type: Report from Study
  Country: US (occurrence: US)
  Receive Date: 20140418
  Receipt Date: 20140428
  Transmission Date: 20141212
  Serious: Yes (Hospitalization)
  Sender: FDA-Public Use
  Company Number: US-ROCHE-1110133

PATIENT
  Age: 76 Year
  Sex: Female
  Weight: 69.92 kg

DRUGS (21)
  1. TRASTUZUMAB [Suspect]
     Indication: BREAST CANCER
     Dosage: LOADING DOSE
     Route: 042
     Dates: start: 20120711, end: 20120711
  2. TRASTUZUMAB [Suspect]
     Dosage: MAINTENANCE DOSE, MOST RECENT DOSE PRIOR TO SAE 01/AUG/2012
     Route: 042
     Dates: end: 20120822
  3. TRASTUZUMAB [Suspect]
     Dosage: MAINTENANCE DOSE
     Route: 042
     Dates: start: 20120926
  4. CARBOPLATIN [Suspect]
     Indication: BREAST CANCER
     Dosage: MOST RECENT DOSE PRIOR TO SAE 01/AUG/2012 AND TEMPORARILY INTERUPPTED ON 22/AUG/2012.
     Route: 042
     Dates: start: 20120711, end: 20120920
  5. TAXOTERE [Suspect]
     Indication: BREAST CANCER
     Dosage: MOST RECENT DOSE PRIOR TO SAE 01/AUG/2012, AND TEMPORARILY INTERUPPTED ON 22/AUG/2012.
     Route: 042
     Dates: start: 20120711, end: 20120920
  6. CLONIDINE [Concomitant]
     Route: 065
     Dates: start: 201010
  7. ALLOPURINOL [Concomitant]
     Route: 065
     Dates: start: 200802
  8. BABY ASPIRIN [Concomitant]
     Route: 065
     Dates: start: 201010
  9. LISINOPRIL [Concomitant]
     Route: 065
     Dates: start: 201103
  10. VOLTAREN [Concomitant]
     Dosage: PRN
     Route: 065
     Dates: start: 201001
  11. MAGNESIUM OXIDE [Concomitant]
     Route: 065
     Dates: start: 201010
  12. PRILOSEC [Concomitant]
     Route: 065
     Dates: start: 20120802
  13. PHENERGAN [Concomitant]
     Dosage: PRN
     Route: 048
     Dates: start: 201103
  14. LOMOTIL (UNITED STATES) [Concomitant]
     Dosage: PRN
     Route: 048
     Dates: start: 20120718, end: 20120920
  15. LORTAB [Concomitant]
     Dosage: 5/500 MG Q4-6 PRN
     Route: 065
     Dates: start: 20120802, end: 20120920
  16. CARVEDILOL [Concomitant]
     Route: 065
     Dates: start: 201103
  17. BUMEX [Concomitant]
     Route: 065
  18. OMEPRAZOLE [Concomitant]
     Route: 065
     Dates: start: 20120802, end: 20120920
  19. PERTUZUMAB [Suspect]
     Indication: BREAST CANCER
     Dosage: LOADING DOSE
     Route: 042
     Dates: start: 20120711, end: 20120711
  20. PERTUZUMAB [Suspect]
     Dosage: MAINTENANCE DOSE, MOST RECENT DOSE PRIOR TO SAE 01/AUG/2012
     Route: 042
     Dates: end: 20120822
  21. PERTUZUMAB [Suspect]
     Dosage: MAINTENANCE DOSE
     Route: 042
     Dates: start: 20120926

REACTIONS (2)
  - Breast cellulitis [Recovered/Resolved]
  - Cellulitis [Recovered/Resolved]
